FAERS Safety Report 7579279-3 (Version None)
Quarter: 2011Q2

REPORT INFORMATION
  Report Type: 
  Country: None (occurrence: None)
  Receive Date: 20110628
  Receipt Date: 20110616
  Transmission Date: 20111010
  Serious: Yes (Other)
  Sender: FDA-Public Use
  Company Number: US-RB-028198-11

PATIENT
  Age: 53 Year
  Sex: Male

DRUGS (2)
  1. SILVADENE [Suspect]
     Indication: PRODUCT USED FOR UNKNOWN INDICATION
     Dosage: DOSING INFORMATION UNKNOWN
     Route: 065
  2. SUBOXONE [Suspect]
     Indication: PRODUCT USED FOR UNKNOWN INDICATION
     Dosage: SUBLINGUAL FILM- DOSING INFORMATION UNKNOWN
     Route: 065

REACTIONS (7)
  - ANXIETY [None]
  - RASH [None]
  - MUSCLE TWITCHING [None]
  - SOMNOLENCE [None]
  - HALLUCINATION [None]
  - HYPERTENSION [None]
  - INSOMNIA [None]
